FAERS Safety Report 8499155-1 (Version None)
Quarter: 2012Q2

REPORT INFORMATION
  Report Type: 
  Country: None (occurrence: None)
  Receive Date: 20120405
  Receipt Date: 20100624
  Transmission Date: 20120825
  Serious: Yes (Other)
  Sender: FDA-Public Use
  Company Number: PHHY2010US32775

PATIENT
  Age: 58 Year
  Sex: Female

DRUGS (7)
  1. ZOCOR [Concomitant]
  2. METFFORMIN HYDROCHLORIDE [Concomitant]
  3. SYNTHROID [Concomitant]
  4. BENAZEPRIL HYDROCHLORIDE [Concomitant]
  5. OMEPRAZOLE [Concomitant]
  6. RECLAST [Suspect]
     Indication: OSTEOPOROSIS
     Dosage: 5 MG, ONCE A YEAR, INTRAVENOUS
     Route: 042
     Dates: start: 20100511
  7. CARAFATE [Concomitant]

REACTIONS (13)
  - EYE IRRITATION [None]
  - IRITIS [None]
  - INFLUENZA LIKE ILLNESS [None]
  - PHOTOPHOBIA [None]
  - ERYTHEMA OF EYELID [None]
  - OCULAR HYPERAEMIA [None]
  - CONJUNCTIVITIS [None]
  - EYELID OEDEMA [None]
  - EYE PRURITUS [None]
  - HEADACHE [None]
  - EYE PAIN [None]
  - LACRIMATION INCREASED [None]
  - VISION BLURRED [None]
